FAERS Safety Report 17550702 (Version 1)
Quarter: 2020Q1

REPORT INFORMATION
  Report Type: Spontaneous
  Country: US (occurrence: US)
  Receive Date: 20200317
  Receipt Date: 20200317
  Transmission Date: 20200409
  Serious: Yes (Other)
  Sender: FDA-Public Use
  Company Number: US-FDC LIMITED-2020RIS00102

PATIENT
  Sex: Female

DRUGS (3)
  1. LATANOPROST. [Suspect]
     Active Substance: LATANOPROST
     Dosage: UNK UNK, 1X/DAY AT NIGHT
     Dates: start: 2018
  2. UNSPECIFIED TOOTHPASTE [Suspect]
     Active Substance: UNSPECIFIED INGREDIENT
  3. REFRESH TEARS [Concomitant]
     Active Substance: CARBOXYMETHYLCELLULOSE SODIUM

REACTIONS (2)
  - Colon cancer [Unknown]
  - Dry mouth [Unknown]
